FAERS Safety Report 8221616-0 (Version None)
Quarter: 2012Q1

REPORT INFORMATION
  Report Type: 
  Country: None (occurrence: None)
  Receive Date: 20120320
  Receipt Date: 20120305
  Transmission Date: 20120608
  Serious: Yes (Other)
  Sender: FDA-Public Use
  Company Number: US-WATSON-2012-03956

PATIENT
  Sex: Female
  Weight: 73.016 kg

DRUGS (8)
  1. LEVOTHYROXINE SODIUM [Concomitant]
     Indication: HYPOTHYROIDISM
     Dosage: UNK
     Route: 065
  2. HYDROCHLOROTHIAZIDE [Suspect]
     Indication: HYPERTENSION
     Dosage: 12.5 MG, DAILY
     Route: 048
     Dates: start: 20120201, end: 20120214
  3. DEPAKOTE [Suspect]
     Indication: PETIT MAL EPILEPSY
     Dosage: 250MG SINGLE EXTRA DOSE
     Route: 048
     Dates: start: 20120215, end: 20120215
  4. PRAVASTATIN [Concomitant]
     Indication: BLOOD CHOLESTEROL
     Dosage: UNK
     Route: 065
  5. IMITRAMINE [Concomitant]
     Indication: ANXIETY
     Dosage: UNK
     Route: 065
  6. DEPAKOTE [Suspect]
     Dosage: 250 MG, QID
     Route: 048
     Dates: start: 19800101
  7. DILTIAZEM HCL [Concomitant]
     Indication: BLOOD PRESSURE
     Dosage: UNK
     Route: 065
  8. LISINOPRIL [Concomitant]
     Indication: BLOOD PRESSURE
     Dosage: UNK
     Route: 065

REACTIONS (5)
  - PETIT MAL EPILEPSY [None]
  - DIZZINESS [None]
  - DRUG INTERACTION [None]
  - HYPERTENSION [None]
  - PHOTOPHOBIA [None]
